FAERS Safety Report 7515130-5 (Version None)
Quarter: 2011Q2

REPORT INFORMATION
  Report Type: 
  Country: None (occurrence: None)
  Receive Date: 20110601
  Receipt Date: 20110530
  Transmission Date: 20111010
  Serious: Yes (Other)
  Sender: FDA-Public Use
  Company Number: JP-SANOFI-AVENTIS-2011SA033826

PATIENT
  Sex: Female

DRUGS (1)
  1. LASIX [Suspect]
     Indication: OLIGURIA
     Route: 048

REACTIONS (1)
  - ANURIA [None]
